FAERS Safety Report 19002108 (Version 3)
Quarter: 2022Q1

REPORT INFORMATION
  Report Type: Other
  Country: US (occurrence: None)
  Receive Date: 20210312
  Receipt Date: 20220309
  Transmission Date: 20220423
  Serious: Yes (Other)
  Sender: FDA-Public Use
  Company Number: US-ROCHE-2779625

PATIENT
  Sex: Female
  Weight: 74.910 kg

DRUGS (22)
  1. ACTEMRA [Suspect]
     Active Substance: TOCILIZUMAB
     Indication: Giant cell arteritis
     Route: 058
  2. ACTEMRA [Suspect]
     Active Substance: TOCILIZUMAB
  3. GABAPENTIN [Concomitant]
     Active Substance: GABAPENTIN
  4. PAXIL [Concomitant]
     Active Substance: PAROXETINE HYDROCHLORIDE
  5. PRAVACHOL [Concomitant]
     Active Substance: PRAVASTATIN SODIUM
  6. BACLOFEN [Concomitant]
     Active Substance: BACLOFEN
  7. LASIX [Concomitant]
     Active Substance: FUROSEMIDE
  8. POTASSIUM [Concomitant]
     Active Substance: POTASSIUM
  9. TOPIRAMATE [Concomitant]
     Active Substance: TOPIRAMATE
  10. CHLORPROMAZINE [Concomitant]
     Active Substance: CHLORPROMAZINE
  11. ZOMIG [Concomitant]
     Active Substance: ZOLMITRIPTAN
  12. BOTOX [Concomitant]
     Active Substance: ONABOTULINUMTOXINA
  13. DORZOLAMIDE HYDROCHLORIDE [Concomitant]
     Active Substance: DORZOLAMIDE HYDROCHLORIDE
  14. TIMOLOL MALEATE [Concomitant]
     Active Substance: TIMOLOL MALEATE
  15. BRIMONIDINE TARTRATE [Concomitant]
     Active Substance: BRIMONIDINE TARTRATE
  16. LATANOPROST [Concomitant]
     Active Substance: LATANOPROST
  17. LEVOXYL [Concomitant]
     Active Substance: LEVOTHYROXINE SODIUM
  18. VITAMIN C [Concomitant]
     Active Substance: ASCORBIC ACID
  19. CALCIUM [Concomitant]
     Active Substance: CALCIUM
  20. VITAMIN D3 [Concomitant]
     Active Substance: CHOLECALCIFEROL
  21. BENZALKONIUM CHLORIDE\SODIUM CHLORIDE [Concomitant]
     Active Substance: BENZALKONIUM CHLORIDE\SODIUM CHLORIDE
  22. CLARITIN [Concomitant]
     Active Substance: LORATADINE

REACTIONS (3)
  - Blindness unilateral [Unknown]
  - Eye inflammation [Unknown]
  - Panic attack [Unknown]
